FAERS Safety Report 9870991 (Version 1)
Quarter: 2014Q1

REPORT INFORMATION
  Report Type: Spontaneous
  Country: US (occurrence: US)
  Receive Date: 20140205
  Receipt Date: 20140205
  Transmission Date: 20141002
  Serious: No
  Sender: FDA-Public Use
  Company Number: US-GILEAD-2014-0093607

PATIENT
  Sex: Female

DRUGS (1)
  1. SOVALDI [Suspect]
     Indication: PRODUCT USED FOR UNKNOWN INDICATION
     Dosage: UNK
     Route: 065

REACTIONS (5)
  - Pollakiuria [Unknown]
  - Urine odour abnormal [Unknown]
  - Chromaturia [Unknown]
  - Ear pruritus [Unknown]
  - Fatigue [Unknown]
